FAERS Safety Report 4375345-4 (Version None)
Quarter: 2004Q2

REPORT INFORMATION
  Report Type: 
  Country: None (occurrence: None)
  Receive Date: 20040610
  Receipt Date: 20040531
  Transmission Date: 20050107
  Serious: Yes (Death, Other)
  Sender: FDA-Public Use
  Company Number: BR-BRISTOL-MYERS SQUIBB COMPANY-12602355

PATIENT
  Age: 63 Year
  Sex: Male
  Weight: 52 kg

DRUGS (2)
  1. TAXOL [Suspect]
     Indication: LUNG NEOPLASM MALIGNANT
     Dosage: C1 (27-JUN-03) 273 MG; C2 (17-JUL-03) 266 MG
     Route: 042
     Dates: start: 20030627, end: 20030717
  2. CARBOPLATIN [Concomitant]
     Dosage: C1 468 MG; C2 456 MG

REACTIONS (4)
  - ANOREXIA [None]
  - FATIGUE [None]
  - LUNG NEOPLASM MALIGNANT [None]
  - STOMATITIS [None]
